FAERS Safety Report 9000199 (Version 1)
Quarter: 2013Q1

REPORT INFORMATION
  Report Type: Spontaneous
  Country: GB (occurrence: IT)
  Receive Date: 20130102
  Receipt Date: 20130102
  Transmission Date: 20140127
  Serious: Yes (Other)
  Sender: FDA-Public Use
  Company Number: GB-JNJFOC-20121210862

PATIENT
  Sex: Male

DRUGS (2)
  1. IMODIUM [Suspect]
     Indication: COLITIS
     Route: 048
     Dates: start: 20121217, end: 20121217
  2. IMODIUM [Suspect]
     Indication: DIARRHOEA
     Route: 048
     Dates: start: 20121217, end: 20121217

REACTIONS (5)
  - Haematochezia [Unknown]
  - Abdominal distension [Unknown]
  - Anorectal discomfort [Unknown]
  - Constipation [Unknown]
  - Body temperature increased [Unknown]
